FAERS Safety Report 5829715-5 (Version None)
Quarter: 2008Q3

REPORT INFORMATION
  Report Type: 
  Country: None (occurrence: None)
  Receive Date: 20080801
  Receipt Date: 20080721
  Transmission Date: 20090109
  Serious: Yes (Other)
  Sender: FDA-Public Use
  Company Number: US-WYE-H05176008

PATIENT
  Sex: Male

DRUGS (4)
  1. EFFEXOR XR [Suspect]
     Indication: DEPRESSION
     Route: 048
     Dates: start: 20010501
  2. EFFEXOR XR [Suspect]
     Route: 048
  3. EFFEXOR XR [Suspect]
     Route: 048
     Dates: start: 20080501
  4. PANTOPRAZOLE SODIUM [Concomitant]
     Indication: HIATUS HERNIA
     Dosage: 40 MG

REACTIONS (3)
  - ANAEMIA [None]
  - PHLEBITIS [None]
  - WHITE BLOOD CELL COUNT DECREASED [None]
